FAERS Safety Report 11609697 (Version 6)
Quarter: 2016Q4

REPORT INFORMATION
  Report Type: Report from Study
  Country: GB (occurrence: GB)
  Receive Date: 20151007
  Receipt Date: 20161110
  Transmission Date: 20170206
  Serious: Yes (Hospitalization)
  Sender: FDA-Public Use
  Company Number: PHHO2015GB015017

PATIENT
  Age: 61 Year
  Sex: Female
  Weight: 98.7 kg

DRUGS (3)
  1. AIN457 [Suspect]
     Active Substance: SECUKINUMAB
     Indication: PSORIASIS
     Dosage: 300 MG, UNK
     Route: 058
     Dates: start: 20140924, end: 20150922
  2. FLUCLOXACILLIN [Suspect]
     Active Substance: FLUCLOXACILLIN
     Dosage: 2 G, UNK
     Route: 042
     Dates: start: 20150926, end: 20150927
  3. FLUCLOXACILLIN [Suspect]
     Active Substance: FLUCLOXACILLIN
     Indication: CELLULITIS
     Dosage: UNK
     Route: 048
     Dates: start: 20150922

REACTIONS (2)
  - Drug eruption [Recovering/Resolving]
  - Cellulitis [Recovered/Resolved]

NARRATIVE: CASE EVENT DATE: 20150922
